FAERS Safety Report 8506603-7 (Version None)
Quarter: 2012Q2

REPORT INFORMATION
  Report Type: 
  Country: None (occurrence: None)
  Receive Date: 20120405
  Receipt Date: 20090423
  Transmission Date: 20120825
  Serious: Yes (Other)
  Sender: FDA-Public Use
  Company Number: PHEH2009US02049

PATIENT
  Age: 73 Year
  Weight: 58.3 kg

DRUGS (1)
  1. RECLAST [Suspect]
     Indication: OSTEOPOROSIS
     Dosage: 5 M/100 CC ONE TIME DOSE, INTRAVENOUS
     Route: 042
     Dates: start: 20080922

REACTIONS (7)
  - HYPOCALCAEMIA [None]
  - PAIN IN JAW [None]
  - BLOOD PRESSURE INCREASED [None]
  - BLOOD CHOLESTEROL INCREASED [None]
  - WEIGHT INCREASED [None]
  - ARTHRALGIA [None]
  - LOW DENSITY LIPOPROTEIN INCREASED [None]
